FAERS Safety Report 6567926-4 (Version None)
Quarter: 2010Q1

REPORT INFORMATION
  Report Type: 
  Country: None (occurrence: None)
  Receive Date: 20100203
  Receipt Date: 20100125
  Transmission Date: 20100710
  Serious: Yes (Hospitalization)
  Sender: FDA-Public Use
  Company Number: JP-NOVOPROD-303604

PATIENT
  Age: 76 Year
  Sex: Male

DRUGS (1)
  1. NOVOLIN R [Suspect]
     Indication: DIABETES MELLITUS
     Dosage: /SC
     Route: 058

REACTIONS (3)
  - PERICARDITIS [None]
  - PLEURISY [None]
  - SYSTEMIC LUPUS ERYTHEMATOSUS [None]
